FAERS Safety Report 7805309-7 (Version None)
Quarter: 2011Q4

REPORT INFORMATION
  Report Type: 
  Country: None (occurrence: None)
  Receive Date: 20111010
  Receipt Date: 20111004
  Transmission Date: 20120403
  Serious: Yes (Disabling)
  Sender: FDA-Public Use
  Company Number: GB-TEVA-303608ISR

PATIENT
  Age: 20 Year
  Sex: Male
  Weight: 88.451 kg

DRUGS (2)
  1. TRIMETHOPRIM [Concomitant]
     Dates: start: 20110919, end: 20110924
  2. MIRTAZAPINE [Suspect]
     Route: 048
     Dates: start: 20110922

REACTIONS (2)
  - TREMOR [None]
  - CHILLS [None]
